FAERS Safety Report 6427759-6 (Version None)
Quarter: 2009Q4

REPORT INFORMATION
  Report Type: 
  Country: None (occurrence: None)
  Receive Date: 20091030
  Receipt Date: 20091022
  Transmission Date: 20100525
  Serious: Yes (Hospitalization, Disabling, Other)
  Sender: FDA-Public Use
  Company Number: 2009-04415

PATIENT
  Age: 71 Year
  Sex: Female

DRUGS (27)
  1. VELCADE [Suspect]
     Indication: MULTIPLE MYELOMA
     Dosage: 2.25 MG, INTRAVENOUS ; 2.25 MG, INTRAVENOUS ; 2.25 MG, INTRAVENOUS
     Route: 042
     Dates: start: 20090622, end: 20090623
  2. VELCADE [Suspect]
     Indication: MULTIPLE MYELOMA
     Dosage: 2.25 MG, INTRAVENOUS ; 2.25 MG, INTRAVENOUS ; 2.25 MG, INTRAVENOUS
     Route: 042
     Dates: start: 20090625, end: 20090626
  3. VELCADE [Suspect]
     Indication: MULTIPLE MYELOMA
     Dosage: 2.25 MG, INTRAVENOUS ; 2.25 MG, INTRAVENOUS ; 2.25 MG, INTRAVENOUS
     Route: 042
     Dates: start: 20090706, end: 20090717
  4. THALIDOMIDE [Suspect]
     Indication: MULTIPLE MYELOMA
     Dosage: 100 MG, ORAL ; 50 MG, ORAL
     Route: 048
     Dates: start: 20090706, end: 20090801
  5. THALIDOMIDE [Suspect]
     Indication: MULTIPLE MYELOMA
     Dosage: 100 MG, ORAL ; 50 MG, ORAL
     Route: 048
     Dates: start: 20090801
  6. LORAZEPAM [Concomitant]
  7. PROCHLORPERAZINE MALEATE (PROCHLORPEAZINE MALEATE) [Concomitant]
  8. OXYCODONE HCL [Concomitant]
  9. PEPCID [Concomitant]
  10. ALLOPURINOL [Concomitant]
  11. CARVEDILOL [Concomitant]
  12. DOCUSATE SODIUM (DOCUSATE SODIUM) [Concomitant]
  13. EXTRA STRENGTH TYLENOL [Concomitant]
  14. ASPIRIN [Concomitant]
  15. DEXAMETHASONE [Concomitant]
  16. ACYCLOVIR [Concomitant]
  17. POTASSIUM CHLORIDE [Concomitant]
  18. PRILOSEC [Concomitant]
  19. FLEXERIL [Concomitant]
  20. ALDACTONE [Concomitant]
  21. ZOMETA [Concomitant]
  22. BACTRIM DS [Concomitant]
  23. NEURONTIN [Concomitant]
  24. FUROSEMIDE [Concomitant]
  25. LISINOPRIL [Concomitant]
  26. HYDROCHLOROTHIAZIDE [Concomitant]
  27. AMLODIPINE BESYLATE [Concomitant]

REACTIONS (9)
  - ASTHENIA [None]
  - DIZZINESS [None]
  - FALL [None]
  - LOSS OF CONSCIOUSNESS [None]
  - MOBILITY DECREASED [None]
  - MUSCULAR WEAKNESS [None]
  - MYALGIA [None]
  - ORTHOSTATIC HYPOTENSION [None]
  - SYNCOPE [None]
